FAERS Safety Report 6272238-2 (Version None)
Quarter: 2009Q3

REPORT INFORMATION
  Report Type: 
  Country: None (occurrence: None)
  Receive Date: 20090717
  Receipt Date: 20090709
  Transmission Date: 20100115
  Serious: Yes (Death)
  Sender: FDA-Public Use
  Company Number: US-JNJFOC-20090703540

PATIENT
  Age: 62 Year
  Sex: Female

DRUGS (4)
  1. KETOCONAZOLE [Suspect]
     Indication: ONYCHOMYCOSIS
     Route: 048
  2. HYDROCHLOROTHIAZIDE [Concomitant]
     Route: 065
  3. COTRIM [Concomitant]
     Route: 065
  4. ISOSORBIDE DINITRATE [Concomitant]
     Route: 065

REACTIONS (1)
  - HEPATIC NECROSIS [None]
